FAERS Safety Report 13479180 (Version 2)
Quarter: 2017Q3

REPORT INFORMATION
  Report Type: Report from Study
  Country: US (occurrence: US)
  Receive Date: 20170424
  Receipt Date: 20170728
  Transmission Date: 20171127
  Serious: No
  Sender: FDA-Public Use
  Company Number: US-AMGEN-USASL2017028710

PATIENT
  Age: 61 Year
  Sex: Male

DRUGS (2)
  1. REPATHA [Suspect]
     Active Substance: EVOLOCUMAB
     Indication: BLOOD CHOLESTEROL INCREASED
  2. REPATHA [Suspect]
     Active Substance: EVOLOCUMAB
     Indication: HYPERCHOLESTEROLAEMIA
     Dosage: 140 MG, Q2WK
     Route: 065

REACTIONS (9)
  - Rhinalgia [Unknown]
  - Back pain [Unknown]
  - Disorientation [Unknown]
  - Rhinorrhoea [Unknown]
  - Influenza like illness [Unknown]
  - Nasal congestion [Unknown]
  - Asthenia [Unknown]
  - Nasal discomfort [Unknown]
  - Feeling abnormal [Unknown]
